FAERS Safety Report 17996033 (Version 1)
Quarter: 2020Q3

REPORT INFORMATION
  Report Type: Spontaneous
  Country: US (occurrence: US)
  Receive Date: 20200708
  Receipt Date: 20200708
  Transmission Date: 20201103
  Serious: No
  Sender: FDA-Public Use
  Company Number: US-PFIZER INC-2020259577

PATIENT
  Age: 83 Year
  Sex: Female
  Weight: 48.99 kg

DRUGS (1)
  1. AMLODIPINE BESILATE [Suspect]
     Active Substance: AMLODIPINE BESYLATE
     Dosage: 5 MG, DAILY (2.5 MG AND SHE HAS TO TAKE TWO A DAY)
     Dates: start: 2019

REACTIONS (4)
  - Chest discomfort [Unknown]
  - Joint swelling [Unknown]
  - Throat irritation [Unknown]
  - Fluid retention [Unknown]

NARRATIVE: CASE EVENT DATE: 2019
